FAERS Safety Report 11841240 (Version 2)
Quarter: 2016Q1

REPORT INFORMATION
  Report Type: Report from Study
  Country: DE (occurrence: DE)
  Receive Date: 20151216
  Receipt Date: 20160128
  Transmission Date: 20160526
  Serious: Yes (Death, Hospitalization, Other)
  Sender: FDA-Public Use
  Company Number: PHHY2015DE145201

PATIENT
  Sex: Female
  Weight: 46 kg

DRUGS (3)
  1. PAZOPANIB [Suspect]
     Active Substance: PAZOPANIB
     Indication: RENAL CELL CARCINOMA
     Dosage: 800 MG, QD
     Route: 048
     Dates: start: 20140916
  2. PAZOPANIB [Suspect]
     Active Substance: PAZOPANIB
     Dosage: 400 MG, QD
     Route: 048
     Dates: end: 20151104
  3. PAZOPANIB [Suspect]
     Active Substance: PAZOPANIB
     Dosage: 600 MG, QD
     Route: 048

REACTIONS (12)
  - Abdominal pain upper [Recovered/Resolved]
  - Alopecia [Not Recovered/Not Resolved]
  - Hypertension [Recovered/Resolved]
  - Intestinal obstruction [Fatal]
  - Diarrhoea [Recovered/Resolved]
  - Oral herpes [Recovered/Resolved]
  - Acute abdomen [Fatal]
  - Back pain [Recovered/Resolved]
  - Headache [Recovered/Resolved]
  - Oral herpes [Recovered/Resolved]
  - Diarrhoea [Recovered/Resolved]
  - Malignant neoplasm progression [Unknown]

NARRATIVE: CASE EVENT DATE: 20140924
